FAERS Safety Report 7606166-4 (Version None)
Quarter: 2011Q3

REPORT INFORMATION
  Report Type: 
  Country: None (occurrence: None)
  Receive Date: 20110713
  Receipt Date: 20110704
  Transmission Date: 20111222
  Serious: Yes (Hospitalization, Other)
  Sender: FDA-Public Use
  Company Number: JP-SHIRE-SPV1-2010-01289

PATIENT
  Sex: Male

DRUGS (10)
  1. NESPO [Concomitant]
     Indication: PRODUCT USED FOR UNKNOWN INDICATION
     Dosage: 10 UG, UNK
     Route: 042
  2. LANTHANUM CARBONATE [Suspect]
     Indication: HYPERPHOSPHATAEMIA
     Dosage: 750 MG, OTHER(IMMEDIATELY AFTER MEALS)
     Route: 048
     Dates: start: 20090609
  3. ONEALFA [Concomitant]
     Indication: PRODUCT USED FOR UNKNOWN INDICATION
     Dosage: .25 UG, UNK
     Route: 048
  4. LANSOPRAZOLE [Concomitant]
     Indication: PRODUCT USED FOR UNKNOWN INDICATION
     Dosage: 15 MG, UNKNOWN
     Route: 048
  5. RISUMIC [Concomitant]
     Indication: PRODUCT USED FOR UNKNOWN INDICATION
     Dosage: 20 MG, UNKNOWN
     Route: 048
  6. RENAGEL [Concomitant]
     Indication: HYPERPHOSPHATAEMIA
     Dosage: UNK UNK, UNKNOWN
     Route: 048
  7. THYRADIN [Concomitant]
     Indication: PRODUCT USED FOR UNKNOWN INDICATION
     Dosage: 25 UG, UNK
     Route: 048
  8. BERIZYM [Concomitant]
     Indication: PRODUCT USED FOR UNKNOWN INDICATION
     Dosage: 3 G, UNKNOWN
     Route: 048
  9. CALCIUM CARBONATE [Concomitant]
     Indication: HYPERPHOSPHATAEMIA
     Dosage: 3000 MG, UNKNOWN
     Route: 048
  10. RHUBARB DRY EXTRACT [Concomitant]
     Indication: PRODUCT USED FOR UNKNOWN INDICATION
     Dosage: 2 G, UNKNOWN
     Route: 048

REACTIONS (9)
  - CATARACT OPERATION [None]
  - MELAENA [None]
  - CARPAL TUNNEL DECOMPRESSION [None]
  - SKIN PAPILLOMA [None]
  - CONTUSION [None]
  - CONDITION AGGRAVATED [None]
  - PLEURAL EFFUSION [None]
  - VARICES OESOPHAGEAL [None]
  - HAEMATURIA [None]
